FAERS Safety Report 5525909-7 (Version None)
Quarter: 2007Q4

REPORT INFORMATION
  Report Type: 
  Country: None (occurrence: None)
  Receive Date: 20071126
  Receipt Date: 20071114
  Transmission Date: 20080405
  Serious: Yes (Other)
  Sender: FDA-Public Use
  Company Number: GB-PFIZER INC-2007094694

PATIENT
  Age: 56 Year
  Sex: Female

DRUGS (3)
  1. GABAPENTIN [Suspect]
     Indication: NEURALGIA
  2. LYRICA [Suspect]
     Indication: NEURALGIA
     Dosage: DAILY DOSE:375MG-FREQ:EVERY DAY
  3. CITALOPRAM [Suspect]

REACTIONS (10)
  - AMNESIA [None]
  - ANORGASMIA [None]
  - COGNITIVE DISORDER [None]
  - CONSTIPATION [None]
  - DIARRHOEA [None]
  - DISTURBANCE IN ATTENTION [None]
  - OEDEMA [None]
  - PAIN [None]
  - POLLAKIURIA [None]
  - WEIGHT INCREASED [None]
